FAERS Safety Report 15167071 (Version 1)
Quarter: 2018Q3

REPORT INFORMATION
  Report Type: Spontaneous
  Country: US (occurrence: US)
  Receive Date: 20180621
  Receipt Date: 20180621
  Transmission Date: 20181010
  Serious: Yes (Other)
  Sender: FDA-Public Use
  Company Number: None

PATIENT
  Age: 14 Year
  Sex: Male
  Weight: 49.9 kg

DRUGS (2)
  1. GENERIC CONCERTA [Suspect]
     Active Substance: METHYLPHENIDATE HYDROCHLORIDE
     Indication: AUTISM SPECTRUM DISORDER
     Dosage: 18 + 27 MG, 48 HR THAN HAD TO STOP.
  2. GENERIC CONCERTA [Suspect]
     Active Substance: METHYLPHENIDATE HYDROCHLORIDE
     Indication: ATTENTION DEFICIT/HYPERACTIVITY DISORDER
     Dosage: 18 + 27 MG, 48 HR THAN HAD TO STOP.

REACTIONS (7)
  - Abnormal behaviour [None]
  - Impulse-control disorder [None]
  - Intentional self-injury [None]
  - Product substitution issue [None]
  - Disturbance in attention [None]
  - Educational problem [None]
  - Anger [None]

NARRATIVE: CASE EVENT DATE: 2014
